FAERS Safety Report 5203978-1 (Version None)
Quarter: 2007Q1

REPORT INFORMATION
  Report Type: 
  Country: None (occurrence: None)
  Receive Date: 20070110
  Receipt Date: 20070104
  Transmission Date: 20070707
  Serious: Yes (Death)
  Sender: FDA-Public Use
  Company Number: FR-PFIZER INC-2006152090

PATIENT
  Age: 69 Year
  Sex: Male
  Weight: 92 kg

DRUGS (11)
  1. FRAGMIN [Suspect]
     Dosage: DAILY DOSE:5000I.U.
     Route: 058
  2. EPREX [Suspect]
     Dosage: DAILY DOSE:10000I.U.
     Route: 058
     Dates: end: 20061010
  3. MESTINON [Suspect]
     Route: 048
     Dates: start: 20060615, end: 20061010
  4. IMUREL [Suspect]
     Route: 048
     Dates: start: 20060615, end: 20061010
  5. MEDROL [Concomitant]
  6. LANTUS [Concomitant]
  7. LASIX [Concomitant]
  8. TARDYFERON [Concomitant]
  9. DIFFU K [Concomitant]
  10. NICARDIPINE HCL [Concomitant]
  11. HYPERIUM [Concomitant]

REACTIONS (2)
  - CARDIO-RESPIRATORY ARREST [None]
  - DEATH [None]
